FAERS Safety Report 25440060 (Version 4)
Quarter: 2025Q3

REPORT INFORMATION
  Report Type: Spontaneous
  Country: PA (occurrence: PA)
  Receive Date: 20250616
  Receipt Date: 20250730
  Transmission Date: 20251020
  Serious: No
  Sender: PFIZER
  Company Number: PA-PFIZER INC-PV202500067124

PATIENT
  Age: 11 Year
  Sex: Female

DRUGS (1)
  1. GENOTROPIN [Suspect]
     Active Substance: SOMATROPIN
     Dosage: 0.8 MG, DAILY

REACTIONS (2)
  - Device information output issue [Unknown]
  - Drug dose omission by device [Unknown]
